FAERS Safety Report 18382735 (Version 1)
Quarter: 2020Q4

REPORT INFORMATION
  Report Type: Spontaneous
  Country: US (occurrence: US)
  Receive Date: 20201013
  Receipt Date: 20201013
  Transmission Date: 20210114
  Serious: Yes (Hospitalization)
  Sender: FDA-Public Use
  Company Number: None

PATIENT
  Age: 2 Year
  Sex: Male

DRUGS (1)
  1. SILDENAFIL, 10MG/ML [Suspect]
     Active Substance: SILDENAFIL
     Indication: HYPERTENSIVE HEART DISEASE
     Dosage: ROUTE: PER J TUBE
     Dates: start: 20190205

REACTIONS (1)
  - Respiratory disorder [None]
